FAERS Safety Report 9434572 (Version 1)
Quarter: 2013Q3

REPORT INFORMATION
  Report Type: Spontaneous
  Country: US (occurrence: US)
  Receive Date: 20130801
  Receipt Date: 20130801
  Transmission Date: 20140515
  Serious: No
  Sender: FDA-Public Use
  Company Number: US-PFIZER INC-2013222903

PATIENT
  Age: 70 Year
  Sex: Female
  Weight: 104 kg

DRUGS (3)
  1. CHANTIX [Suspect]
     Indication: SMOKING CESSATION THERAPY
     Dosage: UNK
     Dates: start: 201212, end: 201307
  2. MAXZIDE [Suspect]
     Indication: BLOOD PRESSURE ABNORMAL
     Dosage: UNK
     Dates: end: 201307
  3. LASIX [Suspect]
     Indication: BLOOD PRESSURE ABNORMAL
     Dosage: 40 MG, UNK
     Dates: start: 201307

REACTIONS (1)
  - Fluid retention [Not Recovered/Not Resolved]
